FAERS Safety Report 22656489 (Version 6)
Quarter: 2024Q1

REPORT INFORMATION
  Report Type: Report from Study
  Country: FR (occurrence: FR)
  Receive Date: 20230629
  Receipt Date: 20240315
  Transmission Date: 20240410
  Serious: Yes (Hospitalization, Other)
  Sender: FDA-Public Use
  Company Number: FR-002147023-NVSC2023FR098552

PATIENT
  Sex: Male
  Weight: 89 kg

DRUGS (3)
  1. PLUVICTO [Suspect]
     Active Substance: LUTETIUM LU-177 VIPIVOTIDE TETRAXETAN
     Indication: Hormone-refractory prostate cancer
     Dosage: 7216 MBQ, ONCE/SINGLE (1000 MBQ/ML, CYCLE 1)
     Route: 042
     Dates: start: 20230310, end: 20230310
  2. PLUVICTO [Suspect]
     Active Substance: LUTETIUM LU-177 VIPIVOTIDE TETRAXETAN
     Indication: Prostate cancer metastatic
     Dosage: 7239 MBQ, ONCE/SINGLE (CYCLE 2)
     Route: 065
     Dates: start: 20240104, end: 20240104
  3. PLUVICTO [Suspect]
     Active Substance: LUTETIUM LU-177 VIPIVOTIDE TETRAXETAN
     Dosage: 7144 MBQ, ONCE/SINGLE (CYCLE 3)
     Route: 065
     Dates: start: 20240216, end: 20240216

REACTIONS (9)
  - Spinal cord infection [Recovering/Resolving]
  - Bacteraemia [Unknown]
  - Back pain [Unknown]
  - Metastases to spine [Unknown]
  - Sepsis [Recovering/Resolving]
  - Leukopenia [Unknown]
  - Thrombocytopenia [Unknown]
  - Pain [Not Recovered/Not Resolved]
  - Blood alkaline phosphatase increased [Unknown]

NARRATIVE: CASE EVENT DATE: 20230401
